FAERS Safety Report 17348675 (Version 1)
Quarter: 2020Q1

REPORT INFORMATION
  Report Type: Report from Study
  Country: US (occurrence: US)
  Receive Date: 20200129
  Receipt Date: 20200129
  Transmission Date: 20200409
  Serious: No
  Sender: FDA-Public Use
  Company Number: US-EXELIXIS-CABO-19024372

PATIENT
  Age: 61 Year
  Sex: Female

DRUGS (1)
  1. CABOMETYX [Suspect]
     Active Substance: CABOZANTINIB S-MALATE
     Indication: COLON CANCER
     Dosage: 60 MG, QD(WITHOUT FOOD IN AM)
     Dates: start: 20190912

REACTIONS (8)
  - Diarrhoea [Recovering/Resolving]
  - Off label use [Unknown]
  - Fatigue [Unknown]
  - Decreased appetite [Recovered/Resolved]
  - Dysgeusia [Unknown]
  - Blood pressure decreased [Unknown]
  - Nausea [Recovered/Resolved]
  - Vomiting [Recovered/Resolved]

NARRATIVE: CASE EVENT DATE: 201909
